FAERS Safety Report 9346017 (Version 1)
Quarter: 2013Q2

REPORT INFORMATION
  Report Type: Report from Study
  Country: CA (occurrence: CA)
  Receive Date: 20130613
  Receipt Date: 20130613
  Transmission Date: 20140414
  Serious: Yes (Hospitalization)
  Sender: FDA-Public Use
  Company Number: CA-JNJFOC-20130604716

PATIENT
  Age: 23 Year
  Sex: Female
  Weight: 65 kg

DRUGS (4)
  1. REMICADE [Suspect]
     Indication: CROHN^S DISEASE
     Route: 042
     Dates: start: 201302
  2. IMURAN [Concomitant]
     Route: 065
  3. SALOFALK [Concomitant]
     Route: 065
  4. ELAVIL [Concomitant]
     Route: 065

REACTIONS (4)
  - Infection [Recovered/Resolved]
  - Fibromyalgia [Recovered/Resolved]
  - Haematochezia [Recovered/Resolved]
  - Skin irritation [Recovered/Resolved]
